FAERS Safety Report 8799056 (Version 5)
Quarter: 2013Q4

REPORT INFORMATION
  Report Type: Report from Study
  Country: JP (occurrence: JP)
  Receive Date: 20120920
  Receipt Date: 20131010
  Transmission Date: 20140711
  Serious: Yes (Other)
  Sender: FDA-Public Use
  Company Number: JP-VERTEX PHARMACEUTICAL INC.-2012-020966

PATIENT
  Age: 54 Year
  Sex: Male

DRUGS (15)
  1. VX-950 (TELAPREVIR) [Suspect]
     Indication: CHRONIC HEPATITIS C
     Dosage: 2250 MG, QD
     Route: 048
     Dates: start: 20120710, end: 20120807
  2. VX-950 (TELAPREVIR) [Suspect]
     Dosage: 1500 MG, QD
     Route: 048
     Dates: start: 20120808, end: 20120821
  3. VX-950 (TELAPREVIR) [Suspect]
     Dosage: 1500 MG, QD
     Route: 048
     Dates: start: 20120903, end: 20120905
  4. RIBAVIRIN [Suspect]
     Indication: CHRONIC HEPATITIS C
     Dosage: 800 MG, QD
     Route: 048
     Dates: start: 20120710, end: 20120820
  5. RIBAVIRIN [Suspect]
     Dosage: 600 MG, QD
     Route: 048
     Dates: start: 20120821, end: 20120910
  6. RIBAVIRIN [Suspect]
     Dosage: 800 MG, QD
     Route: 048
     Dates: start: 20120911, end: 20121225
  7. PEGINTRON [Suspect]
     Indication: CHRONIC HEPATITIS C
     Dosage: 1.5 ?G/KG, QW
     Route: 058
     Dates: start: 20120710, end: 20120730
  8. PEGINTRON [Suspect]
     Dosage: 1.04 ?G/KG, QW
     Route: 058
     Dates: start: 20120731, end: 20120807
  9. PEGINTRON [Suspect]
     Dosage: 0.45 ?G/KG, QW
     Route: 058
     Dates: start: 20120808, end: 20120820
  10. PEGINTRON [Suspect]
     Dosage: 1.04 ?G/KG, QW
     Route: 058
     Dates: start: 20120821, end: 20120903
  11. PEGINTRON [Suspect]
     Dosage: 1.5 ?G/KG, QW
     Route: 058
     Dates: start: 20120911, end: 20121120
  12. PEGINTRON [Suspect]
     Dosage: 1 ?G/KG, QW
     Route: 058
     Dates: start: 20121126, end: 20121225
  13. SELBEX [Concomitant]
     Dosage: 50 MG, PRN
     Route: 048
     Dates: start: 20120710
  14. SELBEX [Concomitant]
     Dosage: 50 MG, QD
     Route: 048
  15. MUCOSTA [Concomitant]
     Dosage: 300 MG, QD
     Route: 048
     Dates: start: 20121120, end: 20121123

REACTIONS (2)
  - Neutrophil count decreased [Recovered/Resolved]
  - Off label use [Unknown]
